FAERS Safety Report 20081152 (Version 1)
Quarter: 2021Q4

REPORT INFORMATION
  Report Type: Spontaneous
  Country: CN (occurrence: None)
  Receive Date: 20211117
  Receipt Date: 20211117
  Transmission Date: 20220303
  Serious: Yes (Hospitalization, Other)
  Sender: FDA-Public Use
  Company Number: 2021A804924

PATIENT
  Age: 27588 Day
  Sex: Male
  Weight: 82 kg

DRUGS (12)
  1. DURVALUMAB [Suspect]
     Active Substance: DURVALUMAB
     Indication: Lung squamous cell carcinoma stage III
     Dosage: 1000 MG ONCE EVERY 0 DAY
     Route: 042
     Dates: start: 20210308
  2. DURVALUMAB [Suspect]
     Active Substance: DURVALUMAB
     Indication: Radioimmunotherapy
     Dosage: 1000 MG ONCE EVERY 0 DAY
     Route: 042
     Dates: start: 20210308
  3. DURVALUMAB [Suspect]
     Active Substance: DURVALUMAB
     Indication: Lung squamous cell carcinoma stage III
     Dosage: 1000 MG ONCE EVERY 0 DAY
     Route: 042
     Dates: start: 20210329
  4. DURVALUMAB [Suspect]
     Active Substance: DURVALUMAB
     Indication: Radioimmunotherapy
     Dosage: 1000 MG ONCE EVERY 0 DAY
     Route: 042
     Dates: start: 20210329
  5. DURVALUMAB [Suspect]
     Active Substance: DURVALUMAB
     Indication: Lung squamous cell carcinoma stage III
     Dosage: 1000 MG ONCE EVERY 0 DAY
     Route: 042
     Dates: start: 20210610
  6. DURVALUMAB [Suspect]
     Active Substance: DURVALUMAB
     Indication: Radioimmunotherapy
     Dosage: 1000 MG ONCE EVERY 0 DAY
     Route: 042
     Dates: start: 20210610
  7. DURVALUMAB [Suspect]
     Active Substance: DURVALUMAB
     Indication: Lung squamous cell carcinoma stage III
     Dosage: 1000 MG ONCE EVERY 0 DAY
     Route: 042
     Dates: start: 20210701
  8. DURVALUMAB [Suspect]
     Active Substance: DURVALUMAB
     Indication: Radioimmunotherapy
     Dosage: 1000 MG ONCE EVERY 0 DAY
     Route: 042
     Dates: start: 20210701
  9. DURVALUMAB [Suspect]
     Active Substance: DURVALUMAB
     Indication: Lung squamous cell carcinoma stage III
     Dosage: 1000 MG ONCE EVERY 0 DAY
     Route: 042
     Dates: start: 20210728
  10. DURVALUMAB [Suspect]
     Active Substance: DURVALUMAB
     Indication: Radioimmunotherapy
     Dosage: 1000 MG ONCE EVERY 0 DAY
     Route: 042
     Dates: start: 20210728
  11. DURVALUMAB [Suspect]
     Active Substance: DURVALUMAB
     Indication: Lung squamous cell carcinoma stage III
     Dosage: 1000 MG ONCE EVERY 0 DAY
     Route: 042
     Dates: start: 20210902
  12. DURVALUMAB [Suspect]
     Active Substance: DURVALUMAB
     Indication: Radioimmunotherapy
     Dosage: 1000 MG ONCE EVERY 0 DAY
     Route: 042
     Dates: start: 20210902

REACTIONS (3)
  - Radiation pneumonitis [Unknown]
  - Pneumonia [Recovering/Resolving]
  - Chest discomfort [Unknown]

NARRATIVE: CASE EVENT DATE: 20211026
